FAERS Safety Report 7328834-4 (Version None)
Quarter: 2011Q1

REPORT INFORMATION
  Report Type: 
  Country: None (occurrence: None)
  Receive Date: 20110303
  Receipt Date: 20110216
  Transmission Date: 20110831
  Serious: No
  Sender: FDA-Public Use
  Company Number: US-PFIZER INC-2011034930

PATIENT
  Sex: Male
  Weight: 113 kg

DRUGS (9)
  1. HYDROCHLOROTHIAZIDE [Concomitant]
     Dosage: 25 MG, UNK
  2. FLECAINIDE [Concomitant]
     Dosage: 150 MG, UNK
  3. CLARINEX [Concomitant]
     Indication: HYPERSENSITIVITY
     Dosage: 5 MG, UNK
     Dates: end: 20090301
  4. BENAZEPRIL HYDROCHLORIDE [Suspect]
     Dosage: UNK
     Dates: start: 20110101, end: 20110101
  5. DIGOXIN [Concomitant]
     Dosage: 0.25 MG, UNK
  6. DILTIAZEM [Concomitant]
     Dosage: 240 MG, UNK
  7. PRADAXA [Concomitant]
     Dosage: UNK
  8. ACCUPRIL [Suspect]
     Indication: HYPERTENSION
     Dosage: 40 MG, 1X/DAY
     Route: 048
     Dates: start: 20110201
  9. ZYRTEC [Suspect]
     Indication: HYPERSENSITIVITY
     Dosage: UNK
     Route: 048
     Dates: start: 20090101

REACTIONS (1)
  - HEADACHE [None]
